FAERS Safety Report 12060718 (Version 2)
Quarter: 2016Q1

REPORT INFORMATION
  Report Type: Report from Study
  Country: ES (occurrence: ES)
  Receive Date: 20160210
  Receipt Date: 20160223
  Transmission Date: 20160526
  Serious: Yes (Other)
  Sender: FDA-Public Use
  Company Number: ES-PFIZER INC-2016068355

PATIENT
  Sex: Male

DRUGS (3)
  1. COBIMETINIB [Interacting]
     Active Substance: COBIMETINIB
     Indication: METASTATIC MALIGNANT MELANOMA
     Dosage: 60 MG, 1X/DAY
     Route: 048
     Dates: start: 20150701, end: 20150804
  2. VEMURAFENIB [Interacting]
     Active Substance: VEMURAFENIB
     Indication: METASTATIC MALIGNANT MELANOMA
     Dosage: 960 MG, 2X/DAY
     Dates: start: 20150526, end: 20151211
  3. PRISTIQ EXTENDED RELEASE [Suspect]
     Active Substance: DESVENLAFAXINE SUCCINATE
     Indication: DEPRESSION
     Dosage: 50 MG, DAILY AT BREAKFAST
     Dates: start: 20150622

REACTIONS (5)
  - Disease progression [Unknown]
  - Metastatic malignant melanoma [Unknown]
  - Disorientation [Recovered/Resolved]
  - Toxicity to various agents [Unknown]
  - Drug interaction [Unknown]

NARRATIVE: CASE EVENT DATE: 20150803
